FAERS Safety Report 16571567 (Version 2)
Quarter: 2019Q4

REPORT INFORMATION
  Report Type: Spontaneous
  Country: FR (occurrence: FR)
  Receive Date: 20190715
  Receipt Date: 20191003
  Transmission Date: 20200122
  Serious: Yes (Other)
  Sender: FDA-Public Use
  Company Number: FR-PFIZER INC-2019298043

PATIENT
  Sex: Female

DRUGS (2)
  1. NIVESTIM [Suspect]
     Active Substance: FILGRASTIM
     Dosage: UNK
  2. GRANOCYTE [Suspect]
     Active Substance: LENOGRASTIM
     Dosage: UNK

REACTIONS (2)
  - Aplasia [Recovered/Resolved]
  - Product prescribing error [Unknown]
